FAERS Safety Report 6177572-2 (Version None)
Quarter: 2009Q2

REPORT INFORMATION
  Report Type: 
  Country: None (occurrence: None)
  Receive Date: 20090501
  Receipt Date: 20090501
  Transmission Date: 20091009
  Serious: No
  Sender: FDA-Public Use
  Company Number: None

PATIENT
  Age: 34 Year
  Sex: Male
  Weight: 136 kg

DRUGS (16)
  1. HEPARIN [Suspect]
     Indication: THROMBOSIS PROPHYLAXIS
     Dosage: 500 UNITS/HR IV
     Route: 042
     Dates: start: 20090210, end: 20090216
  2. DIGOXIN [Concomitant]
  3. NESIRETIDE [Concomitant]
  4. PROPOFOL [Concomitant]
  5. HALOPERIDOL [Concomitant]
  6. MILRINONE [Concomitant]
  7. NOREPINEPHRINE [Concomitant]
  8. ACETAMINOPHEN [Concomitant]
  9. FENTANYL [Concomitant]
  10. LORAZEPAM [Concomitant]
  11. ASPIRIN [Concomitant]
  12. FUROSEMIDE [Concomitant]
  13. VANCOMYCIN HCL [Concomitant]
  14. CEFEPIME [Concomitant]
  15. LANSOPRAZOLE [Concomitant]
  16. OXYCODONE HCL AND ACETAMINOPHEN [Concomitant]

REACTIONS (2)
  - ACTIVATED PARTIAL THROMBOPLASTIN TIME PROLONGED [None]
  - HEPARIN-INDUCED THROMBOCYTOPENIA [None]
